FAERS Safety Report 19306274 (Version 1)
Quarter: 2021Q2

REPORT INFORMATION
  Report Type: Spontaneous
  Country: US (occurrence: US)
  Receive Date: 20210525
  Receipt Date: 20210525
  Transmission Date: 20210717
  Serious: Yes (Hospitalization)
  Sender: FDA-Public Use
  Company Number: None

PATIENT
  Age: 64 Year
  Sex: Female

DRUGS (15)
  1. ENTECAVIR. [Suspect]
     Active Substance: ENTECAVIR
     Indication: PRODUCT USED FOR UNKNOWN INDICATION
     Route: 048
     Dates: start: 20210416
  2. GABAPENTIN. [Concomitant]
     Active Substance: GABAPENTIN
  3. TYLENOL [Concomitant]
     Active Substance: ACETAMINOPHEN
  4. FUROSEMIDE. [Concomitant]
     Active Substance: FUROSEMIDE
  5. VITRON?C [Concomitant]
     Active Substance: ASCORBIC ACID\IRON
  6. MIDODRINE [Concomitant]
     Active Substance: MIDODRINE
  7. CIPRO [Concomitant]
     Active Substance: CIPROFLOXACIN HYDROCHLORIDE
  8. ESCITALOPRAM [Concomitant]
     Active Substance: ESCITALOPRAM OXALATE
  9. VIT. B12 [Concomitant]
  10. SPIRONOLACT [Concomitant]
     Active Substance: SPIRONOLACTONE
  11. ANTI?DIARRHE [Concomitant]
  12. ONDANSETRON [Concomitant]
     Active Substance: ONDANSETRON
  13. SOD CHLORIDE [Concomitant]
     Active Substance: SODIUM CHLORIDE
  14. PANTOPRAZOLE [Concomitant]
     Active Substance: PANTOPRAZOLE
  15. NYSTOP [Concomitant]
     Active Substance: NYSTATIN

REACTIONS (1)
  - Rehabilitation therapy [None]
